FAERS Safety Report 9137738 (Version 1)
Quarter: 2013Q1

REPORT INFORMATION
  Report Type: Spontaneous
  Country: DE (occurrence: DE)
  Receive Date: 20130304
  Receipt Date: 20130304
  Transmission Date: 20140127
  Serious: Yes (Hospitalization, Congenital Anomaly, Other)
  Sender: FDA-Public Use
  Company Number: DE-ASTRAZENECA-2013SE12295

PATIENT
  Age: 0 Week
  Sex: Male
  Weight: 2.5 kg

DRUGS (2)
  1. ATENOLOL [Suspect]
     Indication: TACHYCARDIA
     Route: 064
     Dates: start: 20110812, end: 20120515
  2. GYNVITAL GRAVIDA [Concomitant]
     Indication: PROPHYLAXIS OF NEURAL TUBE DEFECT
     Route: 064
     Dates: start: 20110812, end: 20120515

REACTIONS (4)
  - Hydrocele [Unknown]
  - Small for dates baby [Recovered/Resolved]
  - Hypoglycaemia neonatal [Recovered/Resolved]
  - Bradycardia neonatal [Recovered/Resolved]
